FAERS Safety Report 5661743-5 (Version None)
Quarter: 2008Q1

REPORT INFORMATION
  Report Type: 
  Country: None (occurrence: None)
  Receive Date: 20080312
  Receipt Date: 20080227
  Transmission Date: 20080703
  Serious: Yes (Death)
  Sender: FDA-Public Use
  Company Number: JP-GENENTECH-257150

PATIENT
  Sex: Male

DRUGS (4)
  1. BEVACIZUMAB [Suspect]
     Indication: RECTAL CANCER
     Dosage: 5 MG/KG, Q2W
     Route: 042
     Dates: start: 20071127
  2. OXALIPLATIN [Suspect]
     Indication: RECTAL CANCER
     Route: 042
  3. ISOVORIN [Suspect]
     Indication: DRUG USE FOR UNKNOWN INDICATION
     Route: 042
  4. FLUOROURACIL [Suspect]
     Indication: RECTAL CANCER
     Route: 042

REACTIONS (1)
  - DEATH [None]
